FAERS Safety Report 8719305 (Version 2)
Quarter: 2012Q4

REPORT INFORMATION
  Report Type: 
  Country: US (occurrence: US)
  Receive Date: 20120813
  Receipt Date: 20120903
  Transmission Date: 20130627
  Serious: No
  Sender: FDA-Public Use
  Company Number: US-PFIZER INC-2012195941

PATIENT
  Age: 68 Year
  Sex: Female
  Weight: 59.86 kg

DRUGS (3)
  1. XANAX [Suspect]
     Indication: ANXIETY
     Dosage: 1 mg, 1x/day
     Route: 048
     Dates: start: 201002
  2. XANAX [Suspect]
     Dosage: 0.5 mg, 1x/day
     Route: 048
     Dates: start: 2012
  3. WELLBUTRIN [Concomitant]
     Dosage: UNK

REACTIONS (2)
  - Iritis [Unknown]
  - Eye pain [Unknown]
